FAERS Safety Report 18610383 (Version 1)
Quarter: 2020Q4

REPORT INFORMATION
  Report Type: Spontaneous
  Country: US (occurrence: US)
  Receive Date: 20201214
  Receipt Date: 20201214
  Transmission Date: 20210114
  Serious: No
  Sender: FDA-Public Use
  Company Number: US-BAYER-2020-273765

PATIENT
  Age: 43 Year
  Sex: Female

DRUGS (1)
  1. MIRENA [Suspect]
     Active Substance: LEVONORGESTREL
     Indication: CONTRACEPTION
     Dosage: 20 ?G PER DAY CONTINOUSLY
     Route: 015
     Dates: start: 201608, end: 202008

REACTIONS (4)
  - Acne [Recovering/Resolving]
  - Insomnia [Recovering/Resolving]
  - Irritability [Recovering/Resolving]
  - Hepatic steatosis [Recovering/Resolving]

NARRATIVE: CASE EVENT DATE: 202006
